FAERS Safety Report 10242880 (Version 2)
Quarter: 2014Q2

REPORT INFORMATION
  Report Type: Spontaneous
  Country: RO (occurrence: RO)
  Receive Date: 20140618
  Receipt Date: 20140624
  Transmission Date: 20141212
  Serious: Yes (Hospitalization, Other)
  Sender: FDA-Public Use
  Company Number: RO-009507513-1406ROM008089

PATIENT
  Age: 59 Year
  Sex: Female

DRUGS (2)
  1. RIBAVIRIN [Suspect]
     Indication: CHRONIC HEPATITIS C
     Route: 048
  2. PEGASYS [Suspect]
     Indication: CHRONIC HEPATITIS C

REACTIONS (2)
  - Guillain-Barre syndrome [Recovering/Resolving]
  - Acute psychosis [Recovering/Resolving]
